FAERS Safety Report 5511758-2 (Version None)
Quarter: 2007Q4

REPORT INFORMATION
  Report Type: 
  Country: None (occurrence: None)
  Receive Date: 20071109
  Receipt Date: 20071029
  Transmission Date: 20080405
  Serious: Yes (Death, Hospitalization)
  Sender: FDA-Public Use
  Company Number: US-GENENTECH-250367

PATIENT
  Sex: Female
  Weight: 53.968 kg

DRUGS (2)
  1. BEVACIZUMAB [Suspect]
     Indication: GLIOBLASTOMA MULTIFORME
     Dosage: 536 MG, Q2W
     Route: 042
     Dates: start: 20070131
  2. IRINOTECAN HCL [Suspect]
     Indication: GLIOBLASTOMA MULTIFORME
     Dosage: 149 MG, Q2W
     Route: 042
     Dates: start: 20070131, end: 20070912

REACTIONS (1)
  - LEUKOENCEPHALOPATHY [None]
